FAERS Safety Report 12239030 (Version 1)
Quarter: 2016Q2

REPORT INFORMATION
  Report Type: Spontaneous
  Country: TR (occurrence: TR)
  Receive Date: 20160405
  Receipt Date: 20160405
  Transmission Date: 20160815
  Serious: Yes (Other)
  Sender: FDA-Public Use
  Company Number: ALCN2016TR002395

PATIENT

DRUGS (3)
  1. MIOSTAT [Suspect]
     Active Substance: CARBACHOL
     Indication: MIOSIS
     Dosage: UNK
     Route: 031
  2. PREDNISOLONE ACETATE. [Suspect]
     Active Substance: PREDNISOLONE ACETATE
     Indication: POSTOPERATIVE CARE
     Dosage: 1 GTT, 6QD
     Route: 047
  3. MOXIFLOXACIN HCL [Suspect]
     Active Substance: MOXIFLOXACIN
     Indication: POSTOPERATIVE CARE
     Dosage: 1 GTT, 5QD
     Route: 047

REACTIONS (1)
  - Optic neuropathy [Unknown]
